FAERS Safety Report 5570071-8 (Version None)
Quarter: 2007Q4

REPORT INFORMATION
  Report Type: 
  Country: None (occurrence: None)
  Receive Date: 20071218
  Receipt Date: 20071213
  Transmission Date: 20080405
  Serious: Yes (Hospitalization, Other)
  Sender: FDA-Public Use
  Company Number: 23320071621

PATIENT
  Age: 71 Year
  Sex: Female

DRUGS (1)
  1. SOMATULINE AUTOGEL 120MG (LANREOTIDE AUTOGEL) (LANREOTIDE ACETATE) [Suspect]
     Indication: ACROMEGALY
     Dosage: 120 MG (EVERY 4 WEEKS) SUBCUTANEOUS
     Route: 058
     Dates: start: 20050214

REACTIONS (2)
  - BLADDER CANCER [None]
  - HAEMATURIA [None]
